FAERS Safety Report 12306237 (Version 2)
Quarter: 2016Q2

REPORT INFORMATION
  Report Type: Spontaneous
  Country: CA (occurrence: CA)
  Receive Date: 20160426
  Receipt Date: 20160523
  Transmission Date: 20160815
  Serious: Yes (Other)
  Sender: FDA-Public Use
  Company Number: CA-JNJFOC-20160403409

PATIENT
  Sex: Female

DRUGS (2)
  1. ORTHO CYCLEN [Suspect]
     Active Substance: ETHINYL ESTRADIOL\NORGESTIMATE
     Indication: CONTRACEPTION
     Dosage: CYCLEN 28
     Route: 048
  2. CYCLEN [Suspect]
     Active Substance: ETHINYL ESTRADIOL\NORGESTIMATE
     Indication: CONTRACEPTION
     Route: 048
     Dates: start: 2002

REACTIONS (8)
  - Exposure during pregnancy [Recovered/Resolved]
  - Product shape issue [Unknown]
  - Thyroid cancer [Unknown]
  - Pregnancy on oral contraceptive [Recovered/Resolved]
  - Headache [Recovered/Resolved]
  - Product size issue [Unknown]
  - Product colour issue [Unknown]
  - Product outer packaging issue [Unknown]
